FAERS Safety Report 14707494 (Version 4)
Quarter: 2018Q3

REPORT INFORMATION
  Report Type: Spontaneous
  Country: JP (occurrence: JP)
  Receive Date: 20180403
  Receipt Date: 20180813
  Transmission Date: 20181010
  Serious: Yes (Death, Hospitalization, Other)
  Sender: FDA-Public Use
  Company Number: JP-009507513-1803JPN003042J

PATIENT
  Age: 77 Year
  Sex: Male

DRUGS (3)
  1. AVASTIN [Concomitant]
     Active Substance: BEVACIZUMAB
     Indication: ANAPLASTIC ASTROCYTOMA
     Dosage: UNK
     Route: 065
  2. TEMODAL [Suspect]
     Active Substance: TEMOZOLOMIDE
     Dosage: 300 MG/M2, QD
     Route: 048
     Dates: start: 20180216, end: 20180326
  3. TEMODAL [Suspect]
     Active Substance: TEMOZOLOMIDE
     Indication: ANAPLASTIC ASTROCYTOMA
     Dosage: 200 MG/M2, UNK
     Route: 048

REACTIONS (9)
  - Mouth haemorrhage [Not Recovered/Not Resolved]
  - Aspergillus infection [Fatal]
  - Accidental overdose [Unknown]
  - Inappropriate schedule of drug administration [Unknown]
  - Bacterial infection [Not Recovered/Not Resolved]
  - Pancytopenia [Not Recovered/Not Resolved]
  - Fracture [Unknown]
  - Bone marrow failure [Not Recovered/Not Resolved]
  - Pyrexia [Not Recovered/Not Resolved]

NARRATIVE: CASE EVENT DATE: 2018
